FAERS Safety Report 4794932-2 (Version None)
Quarter: 2005Q4

REPORT INFORMATION
  Report Type: 
  Country: None (occurrence: None)
  Receive Date: 20051006
  Receipt Date: 20050928
  Transmission Date: 20060501
  Serious: Yes (Disabling)
  Sender: FDA-Public Use
  Company Number: A044-002-005750

PATIENT
  Age: 65 Year
  Sex: Female

DRUGS (4)
  1. ARICEPT [Suspect]
     Indication: MEMORY IMPAIRMENT
     Dosage: 5 MG, 1 IN 1 D, ORAL
     Route: 048
     Dates: start: 20050810, end: 20050825
  2. FLUOXETINE [Concomitant]
  3. RISPERIDONE [Concomitant]
  4. RIVASTIGMINE TARTRATE [Concomitant]

REACTIONS (5)
  - ASTHENIA [None]
  - DRUG INTERACTION [None]
  - MUSCLE SPASMS [None]
  - RADIAL NERVE PALSY [None]
  - TREMOR [None]
